FAERS Safety Report 8126305-9 (Version None)
Quarter: 2012Q1

REPORT INFORMATION
  Report Type: 
  Country: None (occurrence: None)
  Receive Date: 20120209
  Receipt Date: 20120206
  Transmission Date: 20120608
  Serious: Yes (Hospitalization)
  Sender: FDA-Public Use
  Company Number: US-AMGEN-USASP2011063733

PATIENT
  Age: 74 Year
  Sex: Female

DRUGS (7)
  1. TOVIAZ [Concomitant]
     Indication: BLADDER DISORDER
     Dosage: 8 MG, QD
  2. PROLIA [Suspect]
     Indication: OSTEOPOROSIS POSTMENOPAUSAL
     Dosage: 60 MG, Q6MO
     Route: 058
     Dates: start: 20110601
  3. CELEXA [Concomitant]
     Dosage: UNK
  4. REQUIP [Concomitant]
     Dosage: UNK
  5. ZOCOR [Concomitant]
     Dosage: UNK
  6. COUMADIN [Concomitant]
     Dosage: UNK
  7. LASIX [Concomitant]
     Dosage: UNK

REACTIONS (1)
  - SPINAL COMPRESSION FRACTURE [None]
